FAERS Safety Report 7708729-4 (Version None)
Quarter: 2011Q3

REPORT INFORMATION
  Report Type: 
  Country: None (occurrence: None)
  Receive Date: 20110825
  Receipt Date: 20110825
  Transmission Date: 20111222
  Serious: Yes (Other)
  Sender: FDA-Public Use
  Company Number: None

PATIENT
  Age: 36 Year
  Sex: Male
  Weight: 74.842 kg

DRUGS (1)
  1. CIPROFLOXACIN [Suspect]
     Indication: DIVERTICULITIS
     Dosage: 1TABLET
     Dates: start: 20110812, end: 20110820

REACTIONS (13)
  - FEELING ABNORMAL [None]
  - SCAB [None]
  - IMPAIRED WORK ABILITY [None]
  - PRURITUS [None]
  - PAIN IN EXTREMITY [None]
  - PARAESTHESIA [None]
  - SWELLING [None]
  - BURNING SENSATION [None]
  - SCRATCH [None]
  - PAIN [None]
  - SENSORY LOSS [None]
  - SWOLLEN TONGUE [None]
  - GLOSSODYNIA [None]
